FAERS Safety Report 14243791 (Version 1)
Quarter: 2017Q4

REPORT INFORMATION
  Report Type: Spontaneous
  Country: US (occurrence: US)
  Receive Date: 20171201
  Receipt Date: 20171201
  Transmission Date: 20180321
  Serious: Yes (Other)
  Sender: FDA-Public Use
  Company Number: None

PATIENT
  Age: 45 Year
  Sex: Male
  Weight: 117 kg

DRUGS (2)
  1. GAMMAGARD [Suspect]
     Active Substance: HUMAN IMMUNOGLOBULIN G
     Indication: MYASTHENIA GRAVIS
     Dosage: ?          OTHER FREQUENCY:EVERY 3 WEEKS;?
     Route: 041
  2. GAMMAGARD [Suspect]
     Active Substance: HUMAN IMMUNOGLOBULIN G
     Indication: MYASTHENIA GRAVIS
     Dosage: ?          OTHER FREQUENCY:EVERY 3 WEEKS;?
     Route: 041

REACTIONS (5)
  - Oesophageal disorder [None]
  - Hypoaesthesia [None]
  - Pharyngeal hypoaesthesia [None]
  - Dysphagia [None]
  - Product quality issue [None]

NARRATIVE: CASE EVENT DATE: 20171128
